FAERS Safety Report 4479059-1 (Version None)
Quarter: 2004Q4

REPORT INFORMATION
  Report Type: 
  Country: None (occurrence: None)
  Receive Date: 20040923
  Receipt Date: 20040713
  Transmission Date: 20050328
  Serious: No
  Sender: FDA-Public Use
  Company Number: 207806

PATIENT
  Age: 67 Year
  Sex: Male
  Weight: 73.5 kg

DRUGS (8)
  1. AVASTIN [Suspect]
     Indication: COLON CANCER METASTATIC
     Dosage: 375 MG, Q2W, INTRAVENOUS
     Route: 042
     Dates: start: 20040406
  2. AVASTIN [Suspect]
     Indication: COLON CANCER METASTATIC
     Dosage: 375 MG, Q2W, INTRAVENOUS
     Route: 042
     Dates: start: 20040629
  3. CPT-11 (IRINOTECAN HYDROCHLORIDE) [Concomitant]
  4. LEUCOVORIN (LEUCOVORIN CALCIUM) [Concomitant]
  5. FLUOROURACIL [Concomitant]
  6. DILAUDID [Concomitant]
  7. METOPROLOL TARTRATE [Concomitant]
  8. COMPAZINE [Concomitant]

REACTIONS (1)
  - RECTAL HAEMORRHAGE [None]
